FAERS Safety Report 18151383 (Version 1)
Quarter: 2020Q3

REPORT INFORMATION
  Report Type: Spontaneous
  Country: US (occurrence: US)
  Receive Date: 20200814
  Receipt Date: 20200814
  Transmission Date: 20201103
  Serious: Yes (Other)
  Sender: FDA-Public Use
  Company Number: US-JNJFOC-20200808474

PATIENT
  Age: 54 Year
  Sex: Male
  Weight: 81.72 kg

DRUGS (2)
  1. REMICADE [Suspect]
     Active Substance: INFLIXIMAB
     Route: 042
  2. REMICADE [Suspect]
     Active Substance: INFLIXIMAB
     Indication: PRODUCT USED FOR UNKNOWN INDICATION
     Route: 042

REACTIONS (10)
  - Pallor [Unknown]
  - Anxiety [Unknown]
  - Drug specific antibody present [Unknown]
  - Feeling abnormal [Unknown]
  - Palpitations [Unknown]
  - Cardiac murmur [Unknown]
  - Inflammation [Unknown]
  - Haemorrhage [Unknown]
  - Infusion related reaction [Unknown]
  - Inappropriate schedule of product administration [Unknown]

NARRATIVE: CASE EVENT DATE: 2018
